FAERS Safety Report 7105725-5 (Version None)
Quarter: 2010Q4

REPORT INFORMATION
  Report Type: 
  Country: None (occurrence: None)
  Receive Date: 20101116
  Receipt Date: 20101104
  Transmission Date: 20110411
  Serious: Yes (Other)
  Sender: FDA-Public Use
  Company Number: PHHY2010JP25762

PATIENT
  Sex: Female
  Weight: 70 kg

DRUGS (5)
  1. SANDOSTATIN [Suspect]
     Indication: HEPATIC NEOPLASM
     Dosage: 100 UG, QD
     Route: 058
     Dates: start: 20100331, end: 20100331
  2. SANDOSTATIN [Suspect]
     Dosage: 50 UG, IN TWO DIVIDED DOSES DAILY
     Route: 058
     Dates: start: 20100401, end: 20100401
  3. SANDOSTATIN [Suspect]
     Dosage: 50 UG, QD
     Route: 058
     Dates: start: 20100402, end: 20100403
  4. SANDOSTATIN [Suspect]
     Dosage: 25 UG, DAILY
     Route: 058
     Dates: start: 20100414, end: 20100415
  5. SANDOSTATIN [Suspect]
     Dosage: 50 UG, IN TWO DIVIDED DOSES DAILY
     Route: 058
     Dates: start: 20100416, end: 20100416

REACTIONS (3)
  - AMMONIA INCREASED [None]
  - HEPATIC ENCEPHALOPATHY [None]
  - MALAISE [None]
